FAERS Safety Report 4275384-8 (Version None)
Quarter: 2004Q1

REPORT INFORMATION
  Report Type: 
  Country: None (occurrence: None)
  Receive Date: 20040116
  Receipt Date: 20040112
  Transmission Date: 20041129
  Serious: Yes (Other)
  Sender: FDA-Public Use
  Company Number: 2003-12-0280

PATIENT
  Age: 50 Year
  Sex: Female

DRUGS (3)
  1. CLARITIN-D 24 HOUR [Suspect]
     Indication: RHINORRHOEA
     Dosage: 1 TABLET ORAL
     Route: 048
     Dates: start: 20031202, end: 20031203
  2. CLARITIN-D 24 HOUR [Suspect]
     Indication: THROAT IRRITATION
     Dosage: 1 TABLET ORAL
     Route: 048
     Dates: start: 20031202, end: 20031203
  3. DIOVAN [Concomitant]

REACTIONS (4)
  - COLD SWEAT [None]
  - DIPLEGIA [None]
  - DIZZINESS [None]
  - FALL [None]
